FAERS Safety Report 6300799-3 (Version None)
Quarter: 2009Q3

REPORT INFORMATION
  Report Type: 
  Country: None (occurrence: None)
  Receive Date: 20090807
  Receipt Date: 20090803
  Transmission Date: 20100115
  Serious: Yes (Hospitalization, Other)
  Sender: FDA-Public Use
  Company Number: FR-BRISTOL-MYERS SQUIBB COMPANY-14727218

PATIENT
  Age: 28 Year
  Sex: Female

DRUGS (4)
  1. COUMADIN [Suspect]
     Dosage: FORM-TABS INTERRUPTED ON 5MAY09(10YRS) RESTARTED ON 6MAY09
     Route: 048
     Dates: start: 19990101
  2. AMOXICILLIN TRIHYDRATE [Interacting]
     Route: 048
     Dates: start: 20090401, end: 20090505
  3. KETOPROFEN [Interacting]
     Route: 048
     Dates: start: 20090401, end: 20090505
  4. FUNGIZONE [Concomitant]
     Route: 048
     Dates: start: 20090401, end: 20090505

REACTIONS (5)
  - BLEEDING ANOVULATORY [None]
  - INTERNATIONAL NORMALISED RATIO INCREASED [None]
  - OVERDOSE [None]
  - POTENTIATING DRUG INTERACTION [None]
  - SALPINGITIS [None]
